FAERS Safety Report 7712421-X (Version None)
Quarter: 2011Q3

REPORT INFORMATION
  Report Type: 
  Country: None (occurrence: None)
  Receive Date: 20110826
  Receipt Date: 20110811
  Transmission Date: 20111222
  Serious: Yes (Disabling, Other)
  Sender: FDA-Public Use
  Company Number: FR-PFIZER INC-2011198814

PATIENT
  Age: 72 Year
  Sex: Female

DRUGS (7)
  1. ALENDRONATE SODIUM [Concomitant]
     Dosage: 1 DF, WEEKLY
     Route: 048
  2. PANTOPRAZOLE SODIUM [Concomitant]
     Dosage: 40 MG, DAILY
     Route: 048
  3. LEVOFLOXACIN [Concomitant]
     Dosage: 500 MG, 2X/DAY
     Route: 048
  4. PERIDYS [Concomitant]
     Dosage: 1 DF, 2X/DAY
     Route: 048
  5. ATARAX [Suspect]
     Indication: DEPRESSION
     Dosage: 25 MG, UNK
     Route: 048
     Dates: start: 20110127, end: 20110223
  6. LEXAPRO [Suspect]
     Indication: DEPRESSION
     Dosage: 10 MG, UNK
     Route: 048
     Dates: start: 20110127, end: 20110223
  7. ACETAMINOPHEN [Concomitant]
     Dosage: 2 TO 4 DF DAILY
     Route: 048

REACTIONS (4)
  - SYNCOPE [None]
  - VISION BLURRED [None]
  - MYALGIA [None]
  - ARTHRALGIA [None]
